FAERS Safety Report 4701968-6 (Version None)
Quarter: 2005Q2

REPORT INFORMATION
  Report Type: 
  Country: None (occurrence: None)
  Receive Date: 20050627
  Receipt Date: 20050613
  Transmission Date: 20051028
  Serious: Yes (Death)
  Sender: FDA-Public Use
  Company Number: 2004117310

PATIENT
  Age: 37 Year
  Sex: Female

DRUGS (10)
  1. NEURONTIN [Suspect]
     Indication: ALCOHOLIC SEIZURE
     Dosage: SEE IMAGE
     Dates: start: 19951201
  2. NEURONTIN [Suspect]
     Indication: BIPOLAR DISORDER
     Dosage: SEE IMAGE
     Dates: start: 19951201
  3. NEURONTIN [Suspect]
     Indication: MOVEMENT DISORDER
     Dosage: SEE IMAGE
     Dates: start: 19951201
  4. IBUPROFEN [Suspect]
     Indication: ILL-DEFINED DISORDER
  5. AMITRIPTYLINE HYDROCHLORIDE [Suspect]
     Indication: ILL-DEFINED DISORDER
  6. NORTRIPTYLINE HCL [Suspect]
     Indication: ILL-DEFINED DISORDER
  7. VENLAFAXINE HCL [Suspect]
     Indication: ILL-DEFINED DISORDER
  8. OXAZEPAM [Concomitant]
  9. BENZODIAZEPINE DERIVATIVES  (BENZODIAZEPINE DERIVATIVES) [Concomitant]
  10. OPIOIDS (OPIOIDS) [Concomitant]

REACTIONS (4)
  - COMPLETED SUICIDE [None]
  - DRUG INEFFECTIVE [None]
  - LOSS OF CONSCIOUSNESS [None]
  - MULTIPLE DRUG OVERDOSE ACCIDENTAL [None]
